FAERS Safety Report 6252345-0 (Version None)
Quarter: 2009Q2

REPORT INFORMATION
  Report Type: 
  Country: None (occurrence: None)
  Receive Date: 20090629
  Receipt Date: 20090629
  Transmission Date: 20091009
  Serious: Yes (Death)
  Sender: FDA-Public Use
  Company Number: None

PATIENT
  Age: 88 Year
  Sex: Male
  Weight: 68.0396 kg

DRUGS (7)
  1. RISPERDAL [Suspect]
     Dosage: PRIOR TO THIS HE GOT ZYPREXA, 5 MG PO BID FOR ~3-4 DAYS
     Dates: start: 20090621
  2. RISPERDAL [Suspect]
     Dosage: PRIOR TO THIS HE GOT ZYPREXA, 5 MG PO BID FOR ~3-4 DAYS
     Dates: start: 20090622
  3. REMERON [Concomitant]
  4. LEXAPRO [Concomitant]
  5. KLONOPIN [Concomitant]
  6. AMBIEN [Concomitant]
  7. DEPAKOTE [Concomitant]

REACTIONS (1)
  - DEATH [None]
